FAERS Safety Report 21744421 (Version 1)
Quarter: 2022Q4

REPORT INFORMATION
  Report Type: Report from Study
  Country: JP (occurrence: JP)
  Receive Date: 20221218
  Receipt Date: 20221218
  Transmission Date: 20230113
  Serious: Yes (Other)
  Sender: FDA-Public Use
  Company Number: JP-002147023-NVSJ2022JP005002

PATIENT
  Age: 75 Year
  Sex: Female

DRUGS (4)
  1. TABRECTA [Suspect]
     Active Substance: CAPMATINIB
     Indication: Non-small cell lung cancer metastatic
     Dosage: 400 MG
     Route: 048
     Dates: start: 20220222, end: 20220322
  2. TABRECTA [Suspect]
     Active Substance: CAPMATINIB
     Dosage: 300 MG
     Route: 048
     Dates: start: 20220401, end: 20220408
  3. TABRECTA [Suspect]
     Active Substance: CAPMATINIB
     Dosage: 300 MG
     Route: 048
     Dates: start: 20220415, end: 20220512
  4. TABRECTA [Suspect]
     Active Substance: CAPMATINIB
     Dosage: 400 MG
     Route: 048
     Dates: start: 20220513, end: 20220715

REACTIONS (6)
  - Liver disorder [Recovered/Resolved]
  - Aspartate aminotransferase increased [Recovered/Resolved]
  - Alanine aminotransferase increased [Recovered/Resolved]
  - Non-small cell lung cancer metastatic [Not Recovered/Not Resolved]
  - Malignant neoplasm progression [Not Recovered/Not Resolved]
  - Oedema peripheral [Recovered/Resolved]

NARRATIVE: CASE EVENT DATE: 20200318
